FAERS Safety Report 7601503-9 (Version None)
Quarter: 2011Q3

REPORT INFORMATION
  Report Type: 
  Country: None (occurrence: None)
  Receive Date: 20110711
  Receipt Date: 20110629
  Transmission Date: 20111222
  Serious: Yes (Other)
  Sender: FDA-Public Use
  Company Number: GB-PFIZER INC-2011138359

PATIENT
  Age: 58 Year
  Sex: Male

DRUGS (22)
  1. GEMTUZUMAB OZOGAMICIN [Suspect]
     Indication: ACUTE MYELOID LEUKAEMIA
     Dosage: UNK
     Dates: start: 20101206, end: 20110105
  2. DAUNORUBICIN HCL [Suspect]
     Indication: MYELODYSPLASTIC SYNDROME
  3. RAMIPRIL [Concomitant]
     Dosage: 1.25 MG, UNK
     Dates: start: 20101221
  4. CYTARABINE [Suspect]
     Indication: MYELODYSPLASTIC SYNDROME
  5. ONDANSETRON [Concomitant]
     Dosage: UNK
     Dates: start: 20101220
  6. ADCAL-D3 [Concomitant]
     Dosage: 2 DF, UNK
     Dates: start: 20101229
  7. LESTAURTINIB [Suspect]
     Indication: ACUTE MYELOID LEUKAEMIA
     Dosage: UNK
     Dates: start: 20101206, end: 20110105
  8. OMEPRAZOLE [Concomitant]
     Dosage: 20 MG, UNK
     Dates: start: 20101129
  9. ETOPOSIDE [Suspect]
     Indication: ACUTE MYELOID LEUKAEMIA
     Dosage: UNK
     Dates: start: 20101206, end: 20110105
  10. LESTAURTINIB [Suspect]
     Indication: MYELODYSPLASTIC SYNDROME
  11. CHLORHEXIDINE [Concomitant]
     Dosage: 10 ML, UNK
     Dates: start: 20101129
  12. LOPERAMIDE [Concomitant]
     Dosage: 2 MG, UNK
     Dates: start: 20101215
  13. CYTARABINE [Suspect]
     Indication: ACUTE MYELOID LEUKAEMIA
     Dosage: UNK
     Dates: start: 20101206, end: 20110105
  14. ACICLOVIR [Concomitant]
     Dosage: 400 MG, UNK
     Dates: start: 20101129
  15. ETOPOSIDE [Suspect]
     Indication: MYELODYSPLASTIC SYNDROME
  16. DAUNORUBICIN HCL [Suspect]
     Indication: ACUTE MYELOID LEUKAEMIA
     Dosage: UNK
     Dates: start: 20101206, end: 20110105
  17. NYSTATIN [Concomitant]
     Dosage: 1 ML, UNK
     Dates: start: 20101129
  18. METOCLOPRAMIDE [Concomitant]
     Dosage: 10 MG, UNK
     Dates: start: 20101218
  19. GEMTUZUMAB OZOGAMICIN [Suspect]
     Indication: MYELODYSPLASTIC SYNDROME
  20. AMLODIPINE [Concomitant]
     Dosage: 5 MG, UNK
     Dates: start: 20101210
  21. DIPROBASE, UNSPECIFIED [Concomitant]
     Dosage: UNK
     Route: 061
     Dates: start: 20101223
  22. BISOPROLOL [Concomitant]
     Dosage: 2.5 MG, UNK
     Dates: start: 20101225

REACTIONS (2)
  - BLOOD ALKALINE PHOSPHATASE INCREASED [None]
  - GAMMA-GLUTAMYLTRANSFERASE INCREASED [None]
